FAERS Safety Report 9520654 (Version 1)
Quarter: 2013Q3

REPORT INFORMATION
  Report Type: Spontaneous
  Country: GB (occurrence: GB)
  Receive Date: 20130913
  Receipt Date: 20130913
  Transmission Date: 20140515
  Serious: Yes (Hospitalization)
  Sender: FDA-Public Use
  Company Number: GB-009507513-1309GBR004819

PATIENT
  Age: 84 Year
  Sex: Female

DRUGS (5)
  1. ALENDRONATE SODIUM [Suspect]
     Indication: OSTEOPOROSIS
     Dosage: 70 MG/WEEK
     Route: 048
  2. LEVOTHYROXINE SODIUM [Concomitant]
     Dosage: 100 MCG/DAY
  3. WARFARIN [Concomitant]
  4. DIGOXIN [Concomitant]
     Dosage: 125 MCG/DAY
  5. GLUCOSAMINE [Concomitant]
     Dosage: 750 MG/DAY

REACTIONS (3)
  - Oesophageal perforation [Recovered/Resolved]
  - Oesophageal stent insertion [Recovered/Resolved]
  - Drain placement [Recovered/Resolved]
